FAERS Safety Report 13930785 (Version 1)
Quarter: 2017Q3

REPORT INFORMATION
  Report Type: Spontaneous
  Country: US (occurrence: US)
  Receive Date: 20170901
  Receipt Date: 20170901
  Transmission Date: 20171127
  Serious: No
  Sender: FDA-Public Use
  Company Number: US-BIOMARINAP-US-2017-115274

PATIENT
  Sex: Male

DRUGS (1)
  1. ALDURAZYME [Suspect]
     Active Substance: LARONIDASE
     Indication: MUCOPOLYSACCHARIDOSIS I
     Dosage: UNK
     Route: 041
     Dates: start: 20030716

REACTIONS (3)
  - Eating disorder [Recovering/Resolving]
  - General physical health deterioration [Not Recovered/Not Resolved]
  - Pain [Not Recovered/Not Resolved]
